FAERS Safety Report 6766332-7 (Version None)
Quarter: 2010Q2

REPORT INFORMATION
  Report Type: 
  Country: None (occurrence: None)
  Receive Date: 20100512
  Receipt Date: 20060828
  Transmission Date: 20101027
  Serious: No
  Sender: FDA-Public Use
  Company Number: US-144963

PATIENT
  Age: 49 Year
  Sex: Female

DRUGS (1)
  1. WINRHO [Suspect]
     Indication: IDIOPATHIC THROMBOCYTOPENIC PURPURA
     Dates: start: 20051201, end: 20051201

REACTIONS (2)
  - CHROMATURIA [None]
  - HAEMOGLOBIN DECREASED [None]
